FAERS Safety Report 11416125 (Version 1)
Quarter: 2015Q3

REPORT INFORMATION
  Report Type: Spontaneous
  Country: US (occurrence: US)
  Receive Date: 20150825
  Receipt Date: 20150825
  Transmission Date: 20151125
  Serious: No
  Sender: FDA-Public Use
  Company Number: US-TEVA-548392USA

PATIENT
  Age: 77 Year
  Sex: Male

DRUGS (15)
  1. FLUTICASONE [Suspect]
     Active Substance: FLUTICASONE\FLUTICASONE PROPIONATE
     Indication: SINUS DISORDER
     Dosage: FORM OF ADM UNKNOWN
     Route: 045
     Dates: start: 201502
  2. AMLODIPINE [Concomitant]
     Active Substance: AMLODIPINE BESYLATE
  3. DAPSONE. [Concomitant]
     Active Substance: DAPSONE
  4. VITAMIN D [Concomitant]
     Active Substance: CHOLECALCIFEROL
  5. ENABLEX [Concomitant]
     Active Substance: DARIFENACIN\DARIFENACIN HYDROBROMIDE
  6. IRON [Concomitant]
     Active Substance: IRON
  7. OXYTROL [Concomitant]
     Active Substance: OXYBUTYNIN
  8. VENLAFAXINE [Concomitant]
     Active Substance: VENLAFAXINE HYDROCHLORIDE
  9. PRAMIPEXOLE DIHYDROCHLORIDE. [Concomitant]
     Active Substance: PRAMIPEXOLE DIHYDROCHLORIDE
     Dates: start: 2012
  10. ERYTHROMYCIN. [Concomitant]
     Active Substance: ERYTHROMYCIN
     Dates: start: 20150308
  11. FEXOFENADINE [Suspect]
     Active Substance: FEXOFENADINE\FEXOFENADINE HYDROCHLORIDE
     Indication: SEASONAL ALLERGY
     Route: 048
     Dates: start: 2014
  12. PREDNISONE. [Concomitant]
     Active Substance: PREDNISONE
  13. BUPROPION. [Concomitant]
     Active Substance: BUPROPION
  14. ASPIRIN. [Concomitant]
     Active Substance: ASPIRIN
  15. GARCINIA GUMMI-GUTTA [Concomitant]
     Dates: start: 2014

REACTIONS (5)
  - Drug administered to patient of inappropriate age [Unknown]
  - Blood pressure decreased [Recovering/Resolving]
  - Dizziness [Not Recovered/Not Resolved]
  - Headache [Not Recovered/Not Resolved]
  - Tinnitus [Not Recovered/Not Resolved]

NARRATIVE: CASE EVENT DATE: 201502
